FAERS Safety Report 25859700 (Version 1)
Quarter: 2025Q3

REPORT INFORMATION
  Report Type: Spontaneous
  Country: EU (occurrence: EU)
  Receive Date: 20250929
  Receipt Date: 20250929
  Transmission Date: 20251020
  Serious: Yes (Life-Threatening, Hospitalization, Other)
  Sender: MYLAN
  Company Number: None

PATIENT
  Age: 49 Year
  Sex: Female

DRUGS (16)
  1. PAROXETINE [Interacting]
     Active Substance: PAROXETINE
     Indication: Product used for unknown indication
     Dosage: 40 MILLIGRAM, QD
  2. PAROXETINE [Interacting]
     Active Substance: PAROXETINE
     Dosage: 40 MILLIGRAM, QD
     Route: 048
  3. PAROXETINE [Interacting]
     Active Substance: PAROXETINE
     Dosage: 40 MILLIGRAM, QD
     Route: 048
  4. PAROXETINE [Interacting]
     Active Substance: PAROXETINE
     Dosage: 40 MILLIGRAM, QD
  5. METHADONE [Suspect]
     Active Substance: METHADONE HYDROCHLORIDE
     Indication: Product substitution
     Dates: start: 20250817, end: 20250817
  6. METHADONE [Suspect]
     Active Substance: METHADONE HYDROCHLORIDE
     Route: 048
     Dates: start: 20250817, end: 20250817
  7. METHADONE [Suspect]
     Active Substance: METHADONE HYDROCHLORIDE
     Route: 048
     Dates: start: 20250817, end: 20250817
  8. METHADONE [Suspect]
     Active Substance: METHADONE HYDROCHLORIDE
     Dates: start: 20250817, end: 20250817
  9. ALCOHOL [Suspect]
     Active Substance: ALCOHOL
     Indication: Product used for unknown indication
     Dates: start: 20250817, end: 20250817
  10. ALCOHOL [Suspect]
     Active Substance: ALCOHOL
     Route: 048
     Dates: start: 20250817, end: 20250817
  11. ALCOHOL [Suspect]
     Active Substance: ALCOHOL
     Route: 048
     Dates: start: 20250817, end: 20250817
  12. ALCOHOL [Suspect]
     Active Substance: ALCOHOL
     Dates: start: 20250817, end: 20250817
  13. VALIUM [Interacting]
     Active Substance: DIAZEPAM
     Indication: Product used for unknown indication
     Dosage: 20 TO 30 MG/DAY (SCORED TABLET)
  14. VALIUM [Interacting]
     Active Substance: DIAZEPAM
     Dosage: 20 TO 30 MG/DAY (SCORED TABLET)
     Route: 048
  15. VALIUM [Interacting]
     Active Substance: DIAZEPAM
     Dosage: 20 TO 30 MG/DAY (SCORED TABLET)
     Route: 048
  16. VALIUM [Interacting]
     Active Substance: DIAZEPAM
     Dosage: 20 TO 30 MG/DAY (SCORED TABLET)

REACTIONS (4)
  - Coma [Recovered/Resolved]
  - Respiratory distress [Recovered/Resolved]
  - Respiratory acidosis [Recovered/Resolved]
  - Drug abuse [Recovering/Resolving]

NARRATIVE: CASE EVENT DATE: 20250817
